FAERS Safety Report 20512705 (Version 1)
Quarter: 2022Q1

REPORT INFORMATION
  Report Type: Spontaneous
  Country: US (occurrence: None)
  Receive Date: 20220224
  Receipt Date: 20220224
  Transmission Date: 20220423
  Serious: Yes (unspecified)
  Sender: FDA-Public Use
  Company Number: None

PATIENT
  Age: 36 Year
  Sex: Female
  Weight: 67.2 kg

DRUGS (2)
  1. IRON DEXTRAN [Suspect]
     Active Substance: IRON DEXTRAN
     Indication: Anaemia of pregnancy
     Dosage: OTHER FREQUENCY : ONCE;?
     Route: 042
  2. IRON DEXTRAN [Suspect]
     Active Substance: IRON DEXTRAN
     Indication: Iron deficiency anaemia

REACTIONS (12)
  - Abdominal pain [None]
  - Dizziness [None]
  - Headache [None]
  - Staring [None]
  - Unresponsive to stimuli [None]
  - Tremor [None]
  - Bradycardia [None]
  - Hyperhidrosis [None]
  - Infusion related reaction [None]
  - Foetal heart rate decreased [None]
  - Exposure during pregnancy [None]
  - Dyspnoea [None]

NARRATIVE: CASE EVENT DATE: 20220211
